FAERS Safety Report 11519639 (Version 1)
Quarter: 2015Q3

REPORT INFORMATION
  Report Type: Spontaneous
  Country: US (occurrence: US)
  Receive Date: 20150918
  Receipt Date: 20150918
  Transmission Date: 20151125
  Serious: Yes (Hospitalization)
  Sender: FDA-Public Use
  Company Number: US-ROCHE-1633515

PATIENT
  Age: 76 Year
  Sex: Male

DRUGS (1)
  1. ERIVEDGE [Suspect]
     Active Substance: VISMODEGIB
     Indication: NEOPLASM MALIGNANT
     Route: 065
     Dates: start: 2015

REACTIONS (3)
  - Pneumonia [Recovering/Resolving]
  - Dysarthria [Unknown]
  - Pain [Unknown]

NARRATIVE: CASE EVENT DATE: 20150902
